FAERS Safety Report 6921288-9 (Version None)
Quarter: 2010Q3

REPORT INFORMATION
  Report Type: 
  Country: None (occurrence: None)
  Receive Date: 20100812
  Receipt Date: 20100802
  Transmission Date: 20110219
  Serious: Yes (Hospitalization, Other)
  Sender: FDA-Public Use
  Company Number: B0659433A

PATIENT
  Sex: Male

DRUGS (5)
  1. MARAVIROC [Suspect]
     Indication: HIV INFECTION
     Dosage: 150MG TWICE PER DAY
     Route: 048
     Dates: start: 20090929
  2. TRUVADA [Concomitant]
     Route: 048
     Dates: start: 20100102
  3. DARUNAVIR [Concomitant]
     Route: 048
     Dates: start: 20090921
  4. RITONAVIR [Concomitant]
     Route: 048
     Dates: start: 20090921
  5. BACTRIM [Concomitant]
     Route: 048
     Dates: start: 20090929

REACTIONS (1)
  - NON-HODGKIN'S LYMPHOMA [None]
